FAERS Safety Report 13520449 (Version 1)
Quarter: 2017Q2

REPORT INFORMATION
  Report Type: Report from Study
  Country: CO (occurrence: CO)
  Receive Date: 20170507
  Receipt Date: 20170507
  Transmission Date: 20170830
  Serious: Yes (Death, Hospitalization)
  Sender: FDA-Public Use
  Company Number: CO-ROCHE-1931162

PATIENT
  Sex: Female

DRUGS (1)
  1. HERCEPTIN [Suspect]
     Active Substance: TRASTUZUMAB
     Indication: BREAST CANCER
     Route: 042
     Dates: start: 20160610

REACTIONS (4)
  - Electrolyte imbalance [Fatal]
  - Oesophageal ulcer [Unknown]
  - Pneumonia [Fatal]
  - Urinary tract infection [Recovered/Resolved]
